FAERS Safety Report 6129981-5 (Version None)
Quarter: 2009Q1

REPORT INFORMATION
  Report Type: 
  Country: None (occurrence: None)
  Receive Date: 20090324
  Receipt Date: 20090312
  Transmission Date: 20090719
  Serious: Yes (Other)
  Sender: FDA-Public Use
  Company Number: US-MERCK-0903USA03800

PATIENT
  Sex: Female

DRUGS (2)
  1. HYDRODIURIL [Suspect]
     Route: 048
  2. ATENOLOL [Suspect]
     Route: 065

REACTIONS (1)
  - CARDIAC FAILURE CONGESTIVE [None]
